FAERS Safety Report 8442911-6 (Version None)
Quarter: 2012Q2

REPORT INFORMATION
  Report Type: 
  Country: None (occurrence: None)
  Receive Date: 20120615
  Receipt Date: 20120613
  Transmission Date: 20120825
  Serious: Yes (Life-Threatening, Hospitalization)
  Sender: FDA-Public Use
  Company Number: US-B.I. PHARMACEUTICALS,INC./RIDGEFIELD-2012-BP-13693BP

PATIENT
  Sex: Male

DRUGS (3)
  1. TRADJENTA [Suspect]
     Indication: TYPE 2 DIABETES MELLITUS
     Dosage: 5 MG
     Route: 048
     Dates: start: 20120524
  2. LEVEMIR [Concomitant]
     Indication: DIABETES MELLITUS
     Dosage: 120 U
  3. NOVOLOG [Concomitant]
     Indication: DIABETES MELLITUS
     Dosage: 120 U

REACTIONS (3)
  - LACTIC ACIDOSIS [None]
  - HYPOTENSION [None]
  - SEPSIS [None]
